FAERS Safety Report 8289067-0 (Version None)
Quarter: 2012Q2

REPORT INFORMATION
  Report Type: 
  Country: None (occurrence: None)
  Receive Date: 20120411
  Receipt Date: 20120327
  Transmission Date: 20120825
  Serious: Yes (Death, Hospitalization, Disabling, Other)
  Sender: FDA-Public Use
  Company Number: 2012SGN00027

PATIENT
  Age: 75 Year
  Sex: Male
  Weight: 82 kg

DRUGS (5)
  1. LEVOFLOXACIN [Concomitant]
  2. TRIAMCINOLONE (TRIAMCINOLONE ACETONIDE) [Concomitant]
  3. BRENTUXIMAB VEDOTIN (BRENTUXIMAB VEDOTIN) INJECTION [Suspect]
     Indication: MYCOSIS FUNGOIDES
     Dosage: 1.8 MG/KG, Q21D, INTRAVENOUS
     Route: 042
     Dates: start: 20110906, end: 20111220
  4. GABAPENTIN [Concomitant]
  5. PREDNISOLONE ACETATE [Concomitant]

REACTIONS (13)
  - CSF PROTEIN INCREASED [None]
  - SEPSIS [None]
  - AXONAL NEUROPATHY [None]
  - SUPRAVENTRICULAR TACHYCARDIA [None]
  - REFUSAL OF TREATMENT BY PATIENT [None]
  - RESPIRATORY FAILURE [None]
  - RESPIRATORY DISORDER [None]
  - PULMONARY HAEMORRHAGE [None]
  - DYSSTASIA [None]
  - CARDIAC DISORDER [None]
  - NEOPLASM SKIN [None]
  - PNEUMONIA [None]
  - CONDITION AGGRAVATED [None]
